FAERS Safety Report 8898714 (Version 1)
Quarter: 2012Q4

REPORT INFORMATION
  Report Type: 
  Country: HU (occurrence: HU)
  Receive Date: 20121109
  Receipt Date: 20121109
  Transmission Date: 20130627
  Serious: Yes (Other)
  Sender: FDA-Public Use
  Company Number: HU-PFIZER INC-2012278217

PATIENT
  Age: 68 Year
  Sex: Female
  Weight: 85 kg

DRUGS (5)
  1. LYRICA [Suspect]
     Indication: NEUROPATHIC PAIN
     Dosage: 150 mg, 2x/day
     Dates: start: 201104
  2. THIOGAMMA [Concomitant]
     Dosage: UNK
     Dates: start: 201104
  3. BREXIN [Concomitant]
     Dosage: UNK
     Dates: start: 201104
  4. NORMODIPIN [Concomitant]
     Dosage: UNK
     Dates: start: 2007
  5. MERCKFORMIN [Concomitant]
     Dosage: UNK
     Dates: start: 2007

REACTIONS (6)
  - Arthropathy [Not Recovered/Not Resolved]
  - Cyst [Not Recovered/Not Resolved]
  - Drug ineffective [Not Recovered/Not Resolved]
  - Pain [Not Recovered/Not Resolved]
  - Pain in extremity [Not Recovered/Not Resolved]
  - Gait disturbance [Not Recovered/Not Resolved]
